FAERS Safety Report 6756284-8 (Version None)
Quarter: 2010Q2

REPORT INFORMATION
  Report Type: 
  Country: None (occurrence: None)
  Receive Date: 20100604
  Receipt Date: 20100531
  Transmission Date: 20101027
  Serious: Yes (Hospitalization)
  Sender: FDA-Public Use
  Company Number: FR-RB-010411-10

PATIENT
  Sex: Male

DRUGS (8)
  1. BUPRENORPHINE [Suspect]
     Route: 048
     Dates: start: 20100525, end: 20100530
  2. BUPRENORPHINE [Suspect]
     Route: 048
     Dates: start: 20100531
  3. BUPRENORPHINE [Suspect]
     Route: 048
     Dates: start: 20100322, end: 20100524
  4. BUPRENORPHINE [Suspect]
     Route: 048
     Dates: start: 19990101, end: 20100521
  5. ZOLPIDEM [Concomitant]
     Indication: INSOMNIA
     Route: 048
  6. PARACETAMOL [Concomitant]
     Indication: HEADACHE
     Route: 048
  7. CLONAZEPAM [Concomitant]
     Indication: EPILEPSY
     Route: 048
     Dates: start: 20020101
  8. LAMOTRIGINE [Concomitant]
     Indication: EPILEPSY
     Route: 048
     Dates: start: 20020101

REACTIONS (1)
  - EPILEPSY [None]
